FAERS Safety Report 10474803 (Version 3)
Quarter: 2014Q3

REPORT INFORMATION
  Report Type: Report from Study
  Country: JP (occurrence: JP)
  Receive Date: 20140925
  Receipt Date: 20140929
  Transmission Date: 20150326
  Serious: Yes (Other)
  Sender: FDA-Public Use
  Company Number: JP-ROCHE-1457091

PATIENT

DRUGS (2)
  1. CAPECITABINE [Suspect]
     Active Substance: CAPECITABINE
     Indication: COLORECTAL CANCER
     Dosage: 1ST DAY TO 14TH DAY, 8 COURSES
     Route: 048
  2. OXALIPLATIN. [Suspect]
     Active Substance: OXALIPLATIN
     Indication: COLORECTAL CANCER
     Route: 042

REACTIONS (15)
  - Nausea [Unknown]
  - Vomiting [Unknown]
  - Amylase increased [Unknown]
  - Diarrhoea [Unknown]
  - Fatigue [Unknown]
  - Alanine aminotransferase abnormal [Unknown]
  - Thrombocytopenia [Unknown]
  - Aspartate aminotransferase abnormal [Unknown]
  - Neuropathy peripheral [Unknown]
  - Leukopenia [Unknown]
  - Neutropenia [Unknown]
  - Blood bilirubin increased [Unknown]
  - Stomatitis [Unknown]
  - Decreased appetite [Unknown]
  - Palmar-plantar erythrodysaesthesia syndrome [Unknown]
